FAERS Safety Report 8814094 (Version 1)
Quarter: 2012Q4

REPORT INFORMATION
  Report Type: Spontaneous
  Country: US (occurrence: None)
  Receive Date: 20120926
  Receipt Date: 20120926
  Transmission Date: 20130627
  Serious: Yes (Other)
  Sender: FDA-Public Use
  Company Number: None

PATIENT
  Age: 28 Year
  Sex: Female
  Weight: 78.47 kg

DRUGS (2)
  1. FLUTICASONE PROPIONATE [Suspect]
     Indication: ALLERGIC RHINITIS
     Dosage: 1-2 sprays, daily, per nostril
     Route: 045
     Dates: start: 20100930, end: 20120214
  2. NASONEX [Suspect]
     Dosage: 1-2 sprays, daily, per nostril
     Route: 045
     Dates: start: 20120709, end: 20120723

REACTIONS (2)
  - Epistaxis [None]
  - Nasal congestion [None]
